FAERS Safety Report 7170057-6 (Version None)
Quarter: 2010Q4

REPORT INFORMATION
  Report Type: 
  Country: None (occurrence: None)
  Receive Date: 20101217
  Receipt Date: 20101213
  Transmission Date: 20110411
  Serious: Yes (Death)
  Sender: FDA-Public Use
  Company Number: ZA-PFIZER INC-2010171001

PATIENT
  Age: 61 Year
  Sex: Female
  Weight: 118 kg

DRUGS (3)
  1. SUTENT [Suspect]
     Indication: GASTROINTESTINAL CANCER METASTATIC
     Dosage: 50 MG, 1X/DAY
     Route: 048
     Dates: start: 20100309, end: 20100417
  2. PANADO [Concomitant]
     Dosage: UNK
     Route: 048
     Dates: start: 20091110
  3. TRAMADOL [Concomitant]
     Dosage: UNK
     Route: 048
     Dates: start: 20091110

REACTIONS (1)
  - DEATH [None]
